FAERS Safety Report 6211428-1 (Version None)
Quarter: 2009Q2

REPORT INFORMATION
  Report Type: 
  Country: None (occurrence: None)
  Receive Date: 20090602
  Receipt Date: 20090520
  Transmission Date: 20091009
  Serious: Yes (Other)
  Sender: FDA-Public Use
  Company Number: BE-ELI_LILLY_AND_COMPANY-BE200905003374

PATIENT
  Sex: Male
  Weight: 83 kg

DRUGS (1)
  1. GEMZAR [Suspect]
     Indication: MESOTHELIOMA MALIGNANT
     Dosage: 2G UNKNOWN
     Route: 042
     Dates: start: 20090408, end: 20090415

REACTIONS (12)
  - ACUTE MYOCARDIAL INFARCTION [None]
  - CHILLS [None]
  - DEHYDRATION [None]
  - ERYSIPELAS [None]
  - GOUT [None]
  - HYPOKALAEMIA [None]
  - HYPONATRAEMIA [None]
  - INFLAMMATION [None]
  - INJURY [None]
  - INTERNATIONAL NORMALISED RATIO ABNORMAL [None]
  - OEDEMA PERIPHERAL [None]
  - RENAL FAILURE ACUTE [None]
